FAERS Safety Report 20585811 (Version 1)
Quarter: 2022Q1

REPORT INFORMATION
  Report Type: Other
  Country: IT (occurrence: None)
  Receive Date: 20220312
  Receipt Date: 20220312
  Transmission Date: 20220424
  Serious: Yes (Other)
  Sender: FDA-Public Use
  Company Number: IT-Neopharma Inc-000348

PATIENT
  Age: 48 Year
  Sex: Female

DRUGS (2)
  1. ANASTROZOLE [Suspect]
     Active Substance: ANASTROZOLE
     Indication: Product used for unknown indication
  2. ZOLEDRONIC ACID [Suspect]
     Active Substance: ZOLEDRONIC ACID
     Indication: Product used for unknown indication
     Dosage: 4 MG EVERY 28 DAYS FROM JUN 2012 TO NOV 2012.
     Route: 042
     Dates: start: 201206, end: 201211

REACTIONS (2)
  - Disease progression [Unknown]
  - Metastases to liver [Unknown]
